FAERS Safety Report 4715634-4 (Version None)
Quarter: 2005Q3

REPORT INFORMATION
  Report Type: 
  Country: None (occurrence: None)
  Receive Date: 20050713
  Receipt Date: 20050701
  Transmission Date: 20060218
  Serious: Yes (Hospitalization, Other)
  Sender: FDA-Public Use
  Company Number: 2005095668

PATIENT
  Age: 66 Year
  Sex: Female

DRUGS (6)
  1. ATORVASTATIN CALCIUM [Suspect]
     Indication: BLOOD CHOLESTEROL INCREASED
     Dosage: (1 IN 1 D), ORAL
     Route: 048
     Dates: start: 20050225, end: 20050406
  2. ACETAMINOPHEN W/ CODEINE [Suspect]
     Indication: PAIN
     Dosage: (2 TABELTS 4 TIMES  DAILY, ORAL
     Route: 048
     Dates: start: 20050403
  3. WARFARIN SODIUM [Suspect]
     Indication: ATRIAL FIBRILLATION
  4. WARFARIN SODIUM [Suspect]
     Indication: PERIPHERAL EMBOLISM
  5. ASPIRIN [Concomitant]
  6. PROPRANOLOL [Concomitant]

REACTIONS (6)
  - ATRIAL FIBRILLATION [None]
  - HAEMOGLOBIN DECREASED [None]
  - INTERNATIONAL NORMALISED RATIO INCREASED [None]
  - MELAENA [None]
  - PAIN [None]
  - PERIPHERAL EMBOLISM [None]
